FAERS Safety Report 5740992-1 (Version None)
Quarter: 2008Q2

REPORT INFORMATION
  Report Type: 
  Country: None (occurrence: None)
  Receive Date: 20080516
  Receipt Date: 20080509
  Transmission Date: 20081010
  Serious: Yes (Other)
  Sender: FDA-Public Use
  Company Number: DE-PFIZER INC-2008037720

PATIENT
  Sex: Male
  Weight: 76 kg

DRUGS (1)
  1. SORTIS [Suspect]
     Indication: BLOOD TRIGLYCERIDES INCREASED
     Route: 048
     Dates: start: 20080101, end: 20080101

REACTIONS (3)
  - BLOOD TRIGLYCERIDES INCREASED [None]
  - LIPIDS ABNORMAL [None]
  - LIVER FUNCTION TEST ABNORMAL [None]
